FAERS Safety Report 14519267 (Version 1)
Quarter: 2018Q1

REPORT INFORMATION
  Report Type: Other
  Country: AU (occurrence: AU)
  Receive Date: 20180212
  Receipt Date: 20180212
  Transmission Date: 20180509
  Serious: Yes (Death, Hospitalization, Other)
  Sender: FDA-Public Use
  Company Number: AU-ACTELION-A-CH2018-167317

PATIENT
  Age: 43 Year
  Sex: Female

DRUGS (1)
  1. BOSENTAN. [Suspect]
     Active Substance: BOSENTAN
     Indication: PULMONARY ARTERIAL HYPERTENSION
     Dosage: 125 MG, BID
     Route: 048
     Dates: start: 2002

REACTIONS (11)
  - Cellulitis [Unknown]
  - Lower respiratory tract infection [Fatal]
  - Dyspnoea [Unknown]
  - Multiple organ dysfunction syndrome [Unknown]
  - Polycythaemia [Unknown]
  - Pulmonary hypertension [Unknown]
  - Atrial flutter [Unknown]
  - Haemodynamic instability [Unknown]
  - Respiratory failure [Unknown]
  - Hypoxia [Unknown]
  - Therapeutic aspiration [Unknown]

NARRATIVE: CASE EVENT DATE: 200811
